FAERS Safety Report 23203025 (Version 1)
Quarter: 2023Q4

REPORT INFORMATION
  Report Type: Spontaneous
  Country: CA (occurrence: CA)
  Receive Date: 20231120
  Receipt Date: 20231120
  Transmission Date: 20240109
  Serious: Yes (Hospitalization, Other)
  Sender: FDA-Public Use
  Company Number: CA-MYLANLABS-2023M1121974

PATIENT
  Age: 14 Year
  Sex: Female
  Weight: 80.1 kg

DRUGS (2)
  1. ATOVAQUONE\PROGUANIL [Suspect]
     Active Substance: ATOVAQUONE\PROGUANIL
     Indication: Plasmodium falciparum infection
     Dosage: 250 MILLIGRAM, QD (INTERMITTENTLY COMPLIANT)
     Route: 065
     Dates: start: 2019
  2. ATOVAQUONE\PROGUANIL [Suspect]
     Active Substance: ATOVAQUONE\PROGUANIL
     Indication: Prophylactic chemotherapy
     Dosage: UNK (3-DAY COURSE OF ATOVAQUONE/PROGUANIL 18H)
     Route: 065
     Dates: start: 2019

REACTIONS (3)
  - Drug resistance [Unknown]
  - Treatment noncompliance [Unknown]
  - Product dose omission in error [Unknown]

NARRATIVE: CASE EVENT DATE: 20190101
